FAERS Safety Report 8604639-9 (Version None)
Quarter: 2012Q3

REPORT INFORMATION
  Report Type: 
  Country: None (occurrence: None)
  Receive Date: 20120820
  Receipt Date: 20120810
  Transmission Date: 20120928
  Serious: Yes (Other)
  Sender: FDA-Public Use
  Company Number: PHEH2012US015998

PATIENT
  Sex: Female
  Weight: 137.87 kg

DRUGS (6)
  1. ZOMETA [Suspect]
     Indication: BREAST CANCER METASTATIC
  2. CYTOXAN [Concomitant]
  3. TAXOL [Concomitant]
  4. ADRIAMYCIN PFS [Concomitant]
  5. TAMOXIFEN CITRATE [Concomitant]
     Indication: MENOPAUSAL SYMPTOMS
  6. FEMARA [Concomitant]

REACTIONS (13)
  - PAIN [None]
  - NEOPLASM PROGRESSION [None]
  - METASTASES TO BONE [None]
  - BACTERIAL DISEASE CARRIER [None]
  - SEPSIS [None]
  - FLANK PAIN [None]
  - INFECTION [None]
  - FACIAL PAIN [None]
  - IMPAIRED HEALING [None]
  - OSTEONECROSIS OF JAW [None]
  - HAEMORRHAGE [None]
  - NEOPLASM MALIGNANT [None]
  - BACK PAIN [None]
